FAERS Safety Report 9759045 (Version 1)
Quarter: 2013Q4

REPORT INFORMATION
  Report Type: Spontaneous
  Country: US (occurrence: None)
  Receive Date: 20131216
  Receipt Date: 20131216
  Transmission Date: 20140711
  Serious: Yes (Other)
  Sender: FDA-Public Use
  Company Number: 163-21880-12102042 (0)

PATIENT
  Age: 85 Year
  Sex: Female
  Weight: 46 kg

DRUGS (1)
  1. REVLIMID [Suspect]
     Indication: MYELODYSPLASTIC SYNDROME
     Dosage: 5MG, 28 IN 28 D, PO?

REACTIONS (2)
  - Adverse drug reaction [None]
  - Treatment noncompliance [None]
